FAERS Safety Report 11964114 (Version 1)
Quarter: 2016Q1

REPORT INFORMATION
  Report Type: Spontaneous
  Country: US (occurrence: None)
  Receive Date: 20160121
  Receipt Date: 20160121
  Transmission Date: 20160526
  Serious: No
  Sender: FDA-Public Use
  Company Number: None

PATIENT
  Age: 39 Year
  Sex: Female
  Weight: 121.56 kg

DRUGS (6)
  1. TIROSINT [Suspect]
     Active Substance: LEVOTHYROXINE SODIUM
     Indication: HYPOTHYROIDISM
     Route: 047
     Dates: start: 20151025, end: 20160115
  2. IBUPROFEN. [Concomitant]
     Active Substance: IBUPROFEN
  3. SINGULAIR [Concomitant]
     Active Substance: MONTELUKAST SODIUM
  4. LEVOTHYROXINE SODIUM 200 MCG [Suspect]
     Active Substance: LEVOTHYROXINE SODIUM
     Indication: HYPOTHYROIDISM
     Route: 048
  5. PANTOPRAZOLE (PROTONIX) [Concomitant]
  6. ALBUTEROL INHALER [Concomitant]
     Active Substance: ALBUTEROL

REACTIONS (4)
  - Fungal skin infection [None]
  - Therapy cessation [None]
  - Rash pruritic [None]
  - Muscle spasms [None]

NARRATIVE: CASE EVENT DATE: 20160119
